FAERS Safety Report 10389066 (Version 1)
Quarter: 2014Q3

REPORT INFORMATION
  Report Type: Spontaneous
  Country: IT (occurrence: IT)
  Receive Date: 20140817
  Receipt Date: 20140817
  Transmission Date: 20150326
  Serious: Yes (Other)
  Sender: FDA-Public Use
  Company Number: PHHY2014IT097138

PATIENT
  Age: 85 Year
  Sex: Female

DRUGS (6)
  1. FOLINA//FOLIC ACID [Concomitant]
     Dosage: 5 MG, UNK
  2. OMEPRAZOLE. [Concomitant]
     Active Substance: OMEPRAZOLE
     Dosage: 1 DF, UNK
  3. NIFEREX//FERROGLYCINE SULFATE COMPLEX [Concomitant]
     Dosage: 100 MG, UNK
  4. QUETIAPINE SANDOZ [Suspect]
     Active Substance: QUETIAPINE
     Dosage: 100 MG, Q12H
     Route: 048
     Dates: start: 20140705, end: 20140710
  5. CALCIUM CARBONATE. [Concomitant]
     Active Substance: CALCIUM CARBONATE
     Dosage: 1 DF, UNK
  6. NEBIVOLOL EG [Concomitant]
     Active Substance: NEBIVOLOL HYDROCHLORIDE
     Dosage: 5 MG, UNK

REACTIONS (4)
  - Vascular dementia [Recovered/Resolved]
  - Tachycardia [Recovered/Resolved]
  - Delirium [Recovered/Resolved]
  - Contusion [Recovered/Resolved]

NARRATIVE: CASE EVENT DATE: 20140705
